FAERS Safety Report 5336586-2 (Version None)
Quarter: 2007Q2

REPORT INFORMATION
  Report Type: 
  Country: None (occurrence: None)
  Receive Date: 20070523
  Receipt Date: 20070508
  Transmission Date: 20071010
  Serious: Yes (Hospitalization, Other)
  Sender: FDA-Public Use
  Company Number: 070509-0000495

PATIENT
  Age: 2 Year
  Sex: Male

DRUGS (3)
  1. NEMBUTAL [Suspect]
     Indication: ANAESTHESIA
  2. FENTANYL [Suspect]
     Indication: ANAESTHESIA
  3. VERSED [Suspect]
     Indication: ANAESTHESIA

REACTIONS (3)
  - CONVULSION [None]
  - GAIT DISTURBANCE [None]
  - SOMNOLENCE [None]
